FAERS Safety Report 11636622 (Version 1)
Quarter: 2015Q4

REPORT INFORMATION
  Report Type: Spontaneous
  Country: CA (occurrence: CA)
  Receive Date: 20151016
  Receipt Date: 20151016
  Transmission Date: 20160304
  Serious: Yes (Other)
  Sender: FDA-Public Use
  Company Number: CA-SUN PHARMACEUTICAL INDUSTRIES LTD-2015US-104554

PATIENT
  Age: 58 Year
  Sex: Female

DRUGS (2)
  1. TEMOZOLOMIDE. [Suspect]
     Active Substance: TEMOZOLOMIDE
     Indication: GLIOBLASTOMA MULTIFORME
     Dosage: 50 MG/M2 EVERY 21/28 DAYS
     Route: 065
  2. AFATINIB [Suspect]
     Active Substance: AFATINIB
     Indication: GLIOBLASTOMA MULTIFORME
     Dosage: 20-40 MG DAILY DOE 28 DAYS
     Route: 065

REACTIONS (1)
  - Disease progression [Recovering/Resolving]
